APPROVED DRUG PRODUCT: MAPROTILINE HYDROCHLORIDE
Active Ingredient: MAPROTILINE HYDROCHLORIDE
Strength: 25MG
Dosage Form/Route: TABLET;ORAL
Application: A072129 | Product #001
Applicant: AMERICAN THERAPEUTICS INC
Approved: Jan 14, 1988 | RLD: No | RS: No | Type: DISCN